FAERS Safety Report 15852406 (Version 2)
Quarter: 2019Q1

REPORT INFORMATION
  Report Type: Spontaneous
  Country: CN (occurrence: CN)
  Receive Date: 20190122
  Receipt Date: 20190131
  Transmission Date: 20190417
  Serious: Yes (Hospitalization)
  Sender: FDA-Public Use
  Company Number: CN-ELI_LILLY_AND_COMPANY-CN201901007061

PATIENT
  Age: 67 Year
  Sex: Male
  Weight: 85 kg

DRUGS (8)
  1. METFORMIN [Concomitant]
     Active Substance: METFORMIN HYDROCHLORIDE
     Indication: TYPE 2 DIABETES MELLITUS
     Dosage: UNK, TID
     Route: 048
     Dates: start: 2014
  2. HUMULIN 70/30 [Suspect]
     Active Substance: INSULIN HUMAN
     Dosage: 30 IU, EACH NIGHT
     Route: 058
     Dates: start: 2007, end: 20190114
  3. HUMALOG [Suspect]
     Active Substance: INSULIN LISPRO
     Indication: TYPE 2 DIABETES MELLITUS
     Dosage: 8 IU, EACH MORNING
     Route: 058
     Dates: start: 20190114
  4. HUMULIN 70/30 [Suspect]
     Active Substance: INSULIN HUMAN
     Indication: TYPE 2 DIABETES MELLITUS
     Dosage: 30 IU, EACH MORNING
     Route: 058
     Dates: start: 2007, end: 20190114
  5. INSULIN GLARGINE [Concomitant]
     Active Substance: INSULIN GLARGINE
     Dosage: 22 U, QOD
     Route: 058
     Dates: start: 20190114
  6. INSULIN GLARGINE [Concomitant]
     Active Substance: INSULIN GLARGINE
     Indication: TYPE 2 DIABETES MELLITUS
     Dosage: 20 U, QOD (BEFORE SLEEP)
     Route: 058
     Dates: start: 20190114
  7. HUMALOG [Suspect]
     Active Substance: INSULIN LISPRO
     Dosage: 8 IU, DAILY, EACH NOON
     Route: 058
     Dates: start: 20190114
  8. HUMALOG [Suspect]
     Active Substance: INSULIN LISPRO
     Dosage: 8 IU, DAILY, EACH NIGHT
     Route: 058
     Dates: start: 20190114

REACTIONS (4)
  - Blood glucose abnormal [Not Recovered/Not Resolved]
  - Hypoaesthesia [Unknown]
  - Blood glucose increased [Not Recovered/Not Resolved]
  - Blood glucose abnormal [Unknown]
